FAERS Safety Report 4795686-6 (Version None)
Quarter: 2005Q3

REPORT INFORMATION
  Report Type: 
  Country: None (occurrence: None)
  Receive Date: 20050929
  Receipt Date: 20050719
  Transmission Date: 20060218
  Serious: No
  Sender: FDA-Public Use
  Company Number: 05P-163-0306116-00

PATIENT
  Age: 79 Year
  Sex: Female
  Weight: 61.2356 kg

DRUGS (5)
  1. HUMIRA [Suspect]
     Indication: RHEUMATOID ARTHRITIS
     Dosage: 40 MG, 1 IN 2 WK, SUBCUTANEOUS
     Route: 058
     Dates: start: 20040101, end: 20050719
  2. METHOTREXATE SODIUM [Concomitant]
  3. ALENDRONATE SODIUM [Concomitant]
  4. FERROUS SULFATE TAB [Concomitant]
  5. RAMIPRIL [Concomitant]

REACTIONS (1)
  - HERPES ZOSTER [None]
